FAERS Safety Report 23871930 (Version 2)
Quarter: 2024Q2

REPORT INFORMATION
  Report Type: Spontaneous
  Country: JP (occurrence: JP)
  Receive Date: 20240520
  Receipt Date: 20240620
  Transmission Date: 20240716
  Serious: Yes (Death, Hospitalization, Other)
  Sender: FDA-Public Use
  Company Number: JP-SA-2024SA149073

PATIENT
  Age: 69 Year
  Sex: Male

DRUGS (1)
  1. JEVTANA [Suspect]
     Active Substance: CABAZITAXEL
     Indication: Prostate cancer
     Dosage: UNK, UNK, Q4W (LAST DOSE: 26612MG/BODY)
     Route: 041
     Dates: start: 20220408, end: 20240415

REACTIONS (4)
  - Sepsis [Fatal]
  - Infection [Fatal]
  - Osteonecrosis of jaw [Unknown]
  - Febrile neutropenia [Recovering/Resolving]

NARRATIVE: CASE EVENT DATE: 20240301
